FAERS Safety Report 4766691-0 (Version None)
Quarter: 2005Q3

REPORT INFORMATION
  Report Type: 
  Country: None (occurrence: None)
  Receive Date: 20050912
  Receipt Date: 20050830
  Transmission Date: 20060218
  Serious: Yes (Hospitalization, Disabling)
  Sender: FDA-Public Use
  Company Number: 2005122622

PATIENT
  Age: 60 Year
  Sex: Female
  Weight: 68.9467 kg

DRUGS (1)
  1. LIPITOR [Suspect]
     Indication: BLOOD CHOLESTEROL INCREASED
     Dosage: ORAL
     Route: 048

REACTIONS (3)
  - CEREBROVASCULAR ACCIDENT [None]
  - IRRITABLE BOWEL SYNDROME [None]
  - STRESS AT WORK [None]
